FAERS Safety Report 12117795 (Version 2)
Quarter: 2016Q2

REPORT INFORMATION
  Report Type: Report from Study
  Country: BR (occurrence: BR)
  Receive Date: 20160226
  Receipt Date: 20160519
  Transmission Date: 20160815
  Serious: Yes (Hospitalization, Other)
  Sender: FDA-Public Use
  Company Number: BR-ROCHE-1533893

PATIENT
  Age: 54 Year
  Sex: Female
  Weight: 56 kg

DRUGS (13)
  1. MABTHERA [Suspect]
     Active Substance: RITUXIMAB
     Indication: RHEUMATOID ARTHRITIS
     Dosage: RECEIVED 7 CYCLES
     Route: 042
     Dates: start: 20110921
  2. REUQUINOL [Concomitant]
     Active Substance: HYDROXYCHLOROQUINE SULFATE
     Route: 065
  3. AZATHIOPRINE. [Concomitant]
     Active Substance: AZATHIOPRINE
     Route: 065
  4. ESOMEPRAZOLE [Concomitant]
     Active Substance: ESOMEPRAZOLE
     Route: 065
  5. PREDNISONE. [Concomitant]
     Active Substance: PREDNISONE
     Route: 065
  6. LEVOTHYROXINE. [Concomitant]
     Active Substance: LEVOTHYROXINE
     Route: 065
  7. MOTILIUM [Concomitant]
     Active Substance: DOMPERIDONE
     Dosage: BEFORE THE MEALS
     Route: 065
  8. DAPSONA [Concomitant]
  9. DEPURA [Concomitant]
     Active Substance: CHOLECALCIFEROL
     Route: 065
  10. AZATHIOPRINE. [Concomitant]
     Active Substance: AZATHIOPRINE
     Route: 065
  11. LEVOID [Concomitant]
     Active Substance: LEVOTHYROXINE
     Indication: TUBERCULOSIS
  12. REUQUINOL [Concomitant]
     Active Substance: HYDROXYCHLOROQUINE SULFATE
     Route: 065
  13. PREDNISONE. [Concomitant]
     Active Substance: PREDNISONE
     Route: 065

REACTIONS (8)
  - Herpes zoster [Unknown]
  - Pneumonia [Unknown]
  - Fall [Unknown]
  - Tuberculosis [Unknown]
  - Systemic lupus erythematosus [Unknown]
  - Pain [Unknown]
  - Influenza [Recovering/Resolving]
  - Spinal fracture [Unknown]

NARRATIVE: CASE EVENT DATE: 201412
